FAERS Safety Report 7564750-0 (Version None)
Quarter: 2011Q2

REPORT INFORMATION
  Report Type: 
  Country: None (occurrence: None)
  Receive Date: 20110622
  Receipt Date: 20110505
  Transmission Date: 20111010
  Serious: Yes (Other)
  Sender: FDA-Public Use
  Company Number: US-MYLANLABS-2010S1019484

PATIENT
  Age: 49 Year
  Sex: Male
  Weight: 69.4 kg

DRUGS (8)
  1. CLOZAPINE [Suspect]
     Indication: PSYCHOTIC DISORDER
     Dates: end: 20101001
  2. HYTRIN [Concomitant]
     Route: 048
  3. NEURONTIN [Concomitant]
     Route: 048
  4. DEPAKOTE ER [Concomitant]
     Route: 048
  5. CLOZAPINE [Suspect]
     Dosage: 50MG QAM, 100MG AT 5PM, AND 250M GQHS
     Dates: start: 20101001, end: 20110301
  6. DITROPAN [Concomitant]
     Route: 048
  7. HYDREA [Suspect]
     Indication: LEUKAEMIA
     Route: 048
  8. GLUCOPHAGE [Concomitant]
     Route: 048

REACTIONS (2)
  - GRANULOCYTOPENIA [None]
  - LEUKOPENIA [None]
